FAERS Safety Report 6055095-9 (Version None)
Quarter: 2009Q1

REPORT INFORMATION
  Report Type: 
  Country: None (occurrence: None)
  Receive Date: 20090122
  Receipt Date: 20090115
  Transmission Date: 20090719
  Serious: Yes (Life-Threatening, Other)
  Sender: FDA-Public Use
  Company Number: POMP-1000454

PATIENT
  Age: 5 Month
  Sex: Male
  Weight: 8 kg

DRUGS (1)
  1. MYOZYME [Suspect]
     Indication: GLYCOGEN STORAGE DISEASE TYPE II
     Dosage: 20 MG/KG, Q2W, INTRAVENOUS
     Route: 042
     Dates: start: 20080828, end: 20090114

REACTIONS (4)
  - BLOOD PRESSURE DECREASED [None]
  - CYANOSIS [None]
  - HYPERSENSITIVITY [None]
  - INFUSION RELATED REACTION [None]
